FAERS Safety Report 10862210 (Version 1)
Quarter: 2015Q1

REPORT INFORMATION
  Report Type: Spontaneous
  Country: US (occurrence: US)
  Receive Date: 20150223
  Receipt Date: 20150223
  Transmission Date: 20150721
  Serious: No
  Sender: FDA-Public Use
  Company Number: US-ENDO PHARMACEUTICALS INC.-PMDM20140001

PATIENT
  Age: 72 Year
  Sex: Female

DRUGS (3)
  1. PROMETHAZINE DM [Suspect]
     Active Substance: DEXTROMETHORPHAN HYDROBROMIDE\PROMETHAZINE HYDROCHLORIDE
     Indication: UPPER RESPIRATORY TRACT CONGESTION
     Dosage: 6.25MG/5ML
     Route: 048
     Dates: start: 20140215, end: 20140215
  2. AMPICILLIN [Concomitant]
     Active Substance: AMPICILLIN
     Indication: PRODUCT USED FOR UNKNOWN INDICATION
     Dosage: UNK
     Route: 065
  3. PROMETHAZINE DM [Suspect]
     Active Substance: DEXTROMETHORPHAN HYDROBROMIDE\PROMETHAZINE HYDROCHLORIDE
     Dosage: 6.25MG/5ML
     Route: 048
     Dates: start: 20140218, end: 20140218

REACTIONS (2)
  - Headache [Unknown]
  - Sedation [Unknown]

NARRATIVE: CASE EVENT DATE: 20140215
